FAERS Safety Report 6690356-1 (Version None)
Quarter: 2010Q2

REPORT INFORMATION
  Report Type: 
  Country: None (occurrence: None)
  Receive Date: 20100414
  Receipt Date: 20090320
  Transmission Date: 20101027
  Serious: No
  Sender: FDA-Public Use
  Company Number: 09-031

PATIENT
  Age: 78 Year
  Sex: Male

DRUGS (3)
  1. ALEVE [Suspect]
     Indication: MUSCULOSKELETAL PAIN
     Dosage: 220 MG, DAILY, ORAL
     Route: 048
     Dates: start: 20081101, end: 20090106
  2. DITROPAN XL [Concomitant]
  3. AMARYL [Concomitant]

REACTIONS (3)
  - FATIGUE [None]
  - FEELING OF RELAXATION [None]
  - SOMNOLENCE [None]
